FAERS Safety Report 14760840 (Version 3)
Quarter: 2018Q2

REPORT INFORMATION
  Report Type: Spontaneous
  Country: UA (occurrence: UA)
  Receive Date: 20180415
  Receipt Date: 20180531
  Transmission Date: 20180711
  Serious: Yes (Other)
  Sender: FDA-Public Use
  Company Number: UA-ROCHE-2106787

PATIENT
  Sex: Male

DRUGS (1)
  1. TECENTRIQ [Suspect]
     Active Substance: ATEZOLIZUMAB
     Indication: URETERIC CANCER
     Dosage: 3 INFUSIONS
     Route: 042
     Dates: end: 201805

REACTIONS (6)
  - Pancytopenia [Recovered/Resolved]
  - Drug ineffective [Unknown]
  - Disease progression [Not Recovered/Not Resolved]
  - Body temperature increased [Recovered/Resolved]
  - Haemoptysis [Recovered/Resolved]
  - Renal failure [Not Recovered/Not Resolved]

NARRATIVE: CASE EVENT DATE: 201805
